FAERS Safety Report 9087290 (Version 1)
Quarter: 2013Q1

REPORT INFORMATION
  Report Type: Spontaneous
  Country: FR (occurrence: FR)
  Receive Date: 20130131
  Receipt Date: 20130131
  Transmission Date: 20140127
  Serious: Yes (Other)
  Sender: FDA-Public Use
  Company Number: FR-PFIZER INC-2013032147

PATIENT
  Age: 30 Year
  Sex: Female

DRUGS (3)
  1. METHYLPREDNISOLONE SODIUM SUCCINATE [Suspect]
     Indication: MULTIPLE SCLEROSIS
     Dosage: 1G, UNK
     Route: 040
     Dates: start: 200306
  2. METHYLPREDNISOLONE SODIUM SUCCINATE [Suspect]
     Indication: THYROID DISORDER
     Dosage: UNK
     Route: 040
     Dates: start: 200508
  3. METHYLPREDNISOLONE SODIUM SUCCINATE [Suspect]
     Dosage: UNK
     Route: 040
     Dates: start: 200802

REACTIONS (1)
  - Hepatitis [Recovered/Resolved]
